FAERS Safety Report 10791162 (Version 1)
Quarter: 2015Q1

REPORT INFORMATION
  Report Type: Other
  Country: DE (occurrence: DE)
  Receive Date: 20150212
  Receipt Date: 20150212
  Transmission Date: 20150721
  Serious: Yes (Congenital Anomaly, Other)
  Sender: FDA-Public Use
  Company Number: DE-MYLANLABS-2015M1003430

PATIENT

DRUGS (7)
  1. AZATHIOPRINE. [Suspect]
     Active Substance: AZATHIOPRINE
     Indication: SYSTEMIC LUPUS ERYTHEMATOSUS
     Dosage: 100 [MG/D ]
     Route: 064
     Dates: start: 20131220, end: 20140906
  2. DEXAMETHASONE. [Suspect]
     Active Substance: DEXAMETHASONE
     Indication: FOETAL CARDIAC DISORDER
     Dosage: 8 [MG/D ]/ VARYING DOSAGES 2-8MG/D
     Route: 064
  3. QUENSYL [Suspect]
     Active Substance: HYDROXYCHLOROQUINE
     Indication: SYSTEMIC LUPUS ERYTHEMATOSUS
     Dosage: 400 MG, QD
     Route: 064
     Dates: start: 20131220, end: 20140906
  4. FEMIBION SCHWANGERSCHAFT 2 [Concomitant]
     Indication: PROPHYLAXIS OF NEURAL TUBE DEFECT
     Dosage: 0.4 [MG/D ]
     Route: 064
     Dates: start: 20131220, end: 20140905
  5. VIGANTOLETTEN [Concomitant]
     Active Substance: CHOLECALCIFEROL
     Indication: PROPHYLAXIS
     Dosage: 1000 [IE/D ]
     Route: 064
     Dates: start: 20131220, end: 20140906
  6. PREDNISOLON [Suspect]
     Active Substance: PREDNISOLONE
     Indication: SYSTEMIC LUPUS ERYTHEMATOSUS
     Dosage: 5 [MG/D ]/ FROM GW 0-23 AND FROM GW 30-37.1
     Route: 064
     Dates: start: 20131220, end: 20140906
  7. RANITIDINE [Concomitant]
     Active Substance: RANITIDINE\RANITIDINE HYDROCHLORIDE
     Indication: PROPHYLAXIS AGAINST GASTROINTESTINAL ULCER
     Dosage: 150 MG, QD (150 [MG/D ])
     Route: 064
     Dates: start: 20131220, end: 20140906

REACTIONS (5)
  - Ventricular septal defect [Not Recovered/Not Resolved]
  - Small for dates baby [Unknown]
  - Foetal exposure during pregnancy [Unknown]
  - Atrial septal defect [Not Recovered/Not Resolved]
  - Microcephaly [Unknown]

NARRATIVE: CASE EVENT DATE: 20140906
